FAERS Safety Report 22328512 (Version 1)
Quarter: 2023Q2

REPORT INFORMATION
  Report Type: Spontaneous
  Country: US (occurrence: US)
  Receive Date: 20230517
  Receipt Date: 20230517
  Transmission Date: 20230721
  Serious: No
  Sender: FDA-Public Use
  Company Number: US-RADIUS HEALTH INC.-2022US005388

PATIENT
  Sex: Female

DRUGS (2)
  1. TYMLOS [Suspect]
     Active Substance: ABALOPARATIDE
     Indication: Product used for unknown indication
     Dosage: 40 MICROGRAM, QD
     Route: 058
  2. TYMLOS [Suspect]
     Active Substance: ABALOPARATIDE
     Dosage: 60 MICROGRAM, QD
     Route: 058

REACTIONS (9)
  - Capillary disorder [Unknown]
  - Peripheral swelling [Unknown]
  - Intentional dose omission [Unknown]
  - Dizziness [Unknown]
  - Back pain [Unknown]
  - Vertigo [Unknown]
  - Arthralgia [Unknown]
  - Intentional product misuse [Unknown]
  - Fatigue [Unknown]
